FAERS Safety Report 15736153 (Version 1)
Quarter: 2018Q4

REPORT INFORMATION
  Report Type: Spontaneous
  Country: US (occurrence: US)
  Receive Date: 20181203
  Receipt Date: 20181203
  Transmission Date: 20190205
  Serious: Yes (Hospitalization)
  Sender: FDA-Public Use
  Company Number: None

PATIENT
  Age: 63 Year
  Sex: Female
  Weight: 125.2 kg

DRUGS (4)
  1. METHOTREXATE. [Suspect]
     Active Substance: METHOTREXATE
     Dates: end: 20181106
  2. ONCASPAR [Suspect]
     Active Substance: PEGASPARGASE
     Dates: end: 20181109
  3. CYTARABINE. [Suspect]
     Active Substance: CYTARABINE
     Dates: end: 20181109
  4. ETOPOSIDE (VP-16) [Suspect]
     Active Substance: ETOPOSIDE
     Dates: end: 20181109

REACTIONS (9)
  - Neutrophil count decreased [None]
  - Fatigue [None]
  - Dizziness [None]
  - Staphylococcal infection [None]
  - Pyrexia [None]
  - Asthenia [None]
  - Vomiting [None]
  - Dyspnoea [None]
  - Staphylococcal bacteraemia [None]

NARRATIVE: CASE EVENT DATE: 20181124
